FAERS Safety Report 9546798 (Version 1)
Quarter: 2013Q3

REPORT INFORMATION
  Report Type: Spontaneous
  Country: US (occurrence: US)
  Receive Date: 20130924
  Receipt Date: 20130924
  Transmission Date: 20140515
  Serious: Yes (Other)
  Sender: FDA-Public Use
  Company Number: US-AMGEN-USASP2013066199

PATIENT
  Age: 63 Year
  Sex: Male
  Weight: 104.31 kg

DRUGS (6)
  1. ENBREL [Suspect]
     Indication: PSORIATIC ARTHROPATHY
     Dosage: 50 MG, QWK
     Route: 058
  2. XARELTO [Concomitant]
     Dosage: UNK
  3. DILTIAZEM [Concomitant]
     Dosage: UNK
  4. ADVAIR [Concomitant]
     Dosage: UNK
  5. PROAIR                             /00139502/ [Concomitant]
     Dosage: UNK
  6. FISH OIL [Concomitant]
     Dosage: UNK

REACTIONS (4)
  - Atrial fibrillation [Not Recovered/Not Resolved]
  - Cough [Recovered/Resolved]
  - Increased tendency to bruise [Not Recovered/Not Resolved]
  - Injection site urticaria [Recovered/Resolved]
